FAERS Safety Report 19281805 (Version 3)
Quarter: 2021Q3

REPORT INFORMATION
  Report Type: Report from Study
  Country: US (occurrence: US)
  Receive Date: 20210520
  Receipt Date: 20210728
  Transmission Date: 20211014
  Serious: Yes (Hospitalization)
  Sender: FDA-Public Use
  Company Number: US-GLAXOSMITHKLINE-US2021GSK077099

PATIENT
  Age: 49 Year
  Sex: Female
  Weight: 83.3 kg

DRUGS (13)
  1. LOSARTAN. [Concomitant]
     Active Substance: LOSARTAN
     Dosage: UNK
     Dates: start: 20200901
  2. OMEPRAZOLE. [Concomitant]
     Active Substance: OMEPRAZOLE
     Dosage: UNK
     Dates: start: 20210408
  3. VITAMIN C [Concomitant]
     Active Substance: ASCORBIC ACID
     Dosage: UNK
     Dates: start: 20210201
  4. LOPRESSOR [Concomitant]
     Active Substance: METOPROLOL TARTRATE
     Dosage: UNK
     Dates: start: 20200901
  5. CHOLECALCIFEROL [Concomitant]
     Active Substance: CHOLECALCIFEROL
     Dosage: UNK
     Dates: start: 20210216
  6. PROBIOTIC (BIFIDOBACTERIUM LACTIS) [Concomitant]
     Active Substance: BIFIDOBACTERIUM ANIMALIS LACTIS
     Dosage: UNK
     Dates: start: 20201001
  7. AYR SALINE [Concomitant]
     Active Substance: SODIUM CHLORIDE
     Dosage: UNK
     Dates: start: 20210222
  8. SODIUM CHLORIDE. [Concomitant]
     Active Substance: SODIUM CHLORIDE
     Dosage: UNK
  9. NIRAPARIB [Suspect]
     Active Substance: NIRAPARIB
     Indication: ADENOCARCINOMA
     Dosage: 100 MG, QD
     Route: 048
     Dates: start: 20210324, end: 20210424
  10. LIDOCAINE. [Concomitant]
     Active Substance: LIDOCAINE
     Dosage: UNK
     Dates: start: 20210312
  11. LOCNARTECAN. [Suspect]
     Active Substance: LOCNARTECAN
     Indication: ADENOCARCINOMA
     Dosage: 60 MG/M2, Z (ONCE EVERY TWO WEEKS)
     Route: 042
     Dates: start: 20210324, end: 20210324
  12. TESSALON PERLE (BENZONATATE) [Concomitant]
     Dosage: UNK
     Dates: start: 20201001
  13. OMEPRAZOLE. [Concomitant]
     Active Substance: OMEPRAZOLE
     Dosage: UNK
     Dates: start: 20200901, end: 20210408

REACTIONS (2)
  - Pulmonary embolism [Not Recovered/Not Resolved]
  - Cancer pain [Not Recovered/Not Resolved]

NARRATIVE: CASE EVENT DATE: 20210324
